FAERS Safety Report 17518505 (Version 2)
Quarter: 2020Q1

REPORT INFORMATION
  Report Type: Spontaneous
  Country: CN (occurrence: CN)
  Receive Date: 20200310
  Receipt Date: 20200317
  Transmission Date: 20200409
  Serious: Yes (Other)
  Sender: FDA-Public Use
  Company Number: CN-ROCHE-2562092

PATIENT
  Age: 62 Year
  Sex: Male

DRUGS (39)
  1. CYCLOPHOSPHAMIDE. [Concomitant]
     Active Substance: CYCLOPHOSPHAMIDE
     Indication: NON-HODGKIN^S LYMPHOMA
     Dosage: DAY1-3, RFC REGIMEN
     Route: 065
     Dates: start: 20130530
  2. CYCLOPHOSPHAMIDE. [Concomitant]
     Active Substance: CYCLOPHOSPHAMIDE
     Dosage: FCD REGIMEN, DAY1-2
     Route: 065
     Dates: start: 2017
  3. DEXAMETHASONE. [Concomitant]
     Active Substance: DEXAMETHASONE
     Dosage: R+FCD REGIMEN, DAY 1-4
     Route: 065
     Dates: start: 20140322
  4. MABTHERA [Suspect]
     Active Substance: RITUXIMAB
     Dosage: R+FCD REGIMEN
     Route: 065
     Dates: start: 20130530
  5. CYCLOPHOSPHAMIDE. [Concomitant]
     Active Substance: CYCLOPHOSPHAMIDE
     Dosage: DAY1-3, FCD REGIMEN
     Route: 065
     Dates: start: 20150509
  6. DEXAMETHASONE. [Concomitant]
     Active Substance: DEXAMETHASONE
     Dosage: FCD REGIMEN, DAY 1-4
     Route: 065
     Dates: start: 20131104
  7. DEXAMETHASONE. [Concomitant]
     Active Substance: DEXAMETHASONE
     Dosage: FCD REGIMEN, DAY 1-4
     Route: 065
     Dates: start: 2017
  8. MABTHERA [Suspect]
     Active Substance: RITUXIMAB
     Dosage: R+FCD REGIMEN
     Route: 065
     Dates: start: 20151119
  9. DEXAMETHASONE. [Concomitant]
     Active Substance: DEXAMETHASONE
     Dosage: FCD REGIMEN, DAY 1-4
     Route: 065
     Dates: start: 20150309
  10. METHOTREXATE. [Concomitant]
     Active Substance: METHOTREXATE
     Indication: NON-HODGKIN^S LYMPHOMA
     Route: 037
     Dates: start: 201711
  11. MABTHERA [Suspect]
     Active Substance: RITUXIMAB
     Dosage: R+FCD REGIMEN
     Route: 065
     Dates: start: 20150613
  12. THALIDOMIDE [Concomitant]
     Active Substance: THALIDOMIDE
     Indication: NON-HODGKIN^S LYMPHOMA
     Dosage: R+MPT REGIMEN
     Route: 065
     Dates: start: 20130417
  13. PREDNISONE. [Concomitant]
     Active Substance: PREDNISONE
     Indication: NON-HODGKIN^S LYMPHOMA
     Route: 065
  14. FLUDARABINE [Concomitant]
     Active Substance: FLUDARABINE PHOSPHATE
     Indication: NON-HODGKIN^S LYMPHOMA
     Dosage: DAY1-3, RFC REGIMEN
     Route: 065
     Dates: start: 20130530
  15. FLUDARABINE [Concomitant]
     Active Substance: FLUDARABINE PHOSPHATE
     Dosage: R+FCD REGIMEN, DAY2-3
     Route: 065
     Dates: start: 20151119
  16. FLUDARABINE [Concomitant]
     Active Substance: FLUDARABINE PHOSPHATE
     Dosage: FCD REGIMEN, DAY1-3
     Route: 065
     Dates: start: 2017
  17. DEXAMETHASONE. [Concomitant]
     Active Substance: DEXAMETHASONE
     Dosage: PAD REGIMEN, DAY 1-4D
     Route: 065
     Dates: start: 20130905
  18. FLUDARABINE [Concomitant]
     Active Substance: FLUDARABINE PHOSPHATE
     Dosage: FCD REGIMEN, DAY1-3
     Route: 065
     Dates: start: 20150309
  19. CYCLOPHOSPHAMIDE. [Concomitant]
     Active Substance: CYCLOPHOSPHAMIDE
     Dosage: DAY1-3, R-FCD REGIMEN
     Route: 065
     Dates: start: 20150613
  20. BORTEZOMIB. [Concomitant]
     Active Substance: BORTEZOMIB
     Dosage: PAD REGIMEN, DAY 1, 4, 8, 11
     Route: 065
     Dates: start: 20130905
  21. DOXORUBICIN [Concomitant]
     Active Substance: DOXORUBICIN
     Dosage: PAD REGIMEN, DAY 1-2D
     Route: 065
     Dates: start: 20130905
  22. DOXORUBICIN [Concomitant]
     Active Substance: DOXORUBICIN
     Dosage: PAD REGIMEN
     Route: 065
     Dates: start: 20140322
  23. DEXAMETHASONE. [Concomitant]
     Active Substance: DEXAMETHASONE
     Dosage: R+FCD REGIMEN, DAY 1-3
     Route: 065
     Dates: start: 20151119
  24. DEXAMETHASONE. [Concomitant]
     Active Substance: DEXAMETHASONE
     Route: 037
     Dates: start: 201711
  25. IBRUTINIB [Concomitant]
     Active Substance: IBRUTINIB
     Indication: NON-HODGKIN^S LYMPHOMA
     Dosage: 2 MONTHS THERAPY
     Route: 065
     Dates: start: 20171107
  26. IBRUTINIB [Concomitant]
     Active Substance: IBRUTINIB
     Dosage: PER DAY
     Route: 048
  27. CHLORAMBUCIL [Concomitant]
     Active Substance: CHLORAMBUCIL
     Indication: NON-HODGKIN^S LYMPHOMA
     Route: 065
     Dates: start: 20130116
  28. FLUDARABINE [Concomitant]
     Active Substance: FLUDARABINE PHOSPHATE
     Dosage: R+FCD REGIMEN, DAY1-3
     Route: 065
     Dates: start: 20150613
  29. BORTEZOMIB. [Concomitant]
     Active Substance: BORTEZOMIB
     Dosage: PAD REGIMEN
     Route: 065
     Dates: start: 20131104
  30. DOXORUBICIN [Concomitant]
     Active Substance: DOXORUBICIN
     Indication: NON-HODGKIN^S LYMPHOMA
     Dosage: PAD REGIMEN, DAY 1-2D
     Route: 065
     Dates: start: 20130627
  31. DOXORUBICIN [Concomitant]
     Active Substance: DOXORUBICIN
     Dosage: PAD REGIMEN
     Route: 065
     Dates: start: 20131104
  32. DEXAMETHASONE. [Concomitant]
     Active Substance: DEXAMETHASONE
     Indication: NON-HODGKIN^S LYMPHOMA
     Dosage: PAD REGIMEN, DAY 1-4D
     Route: 065
     Dates: start: 20130627
  33. DEXAMETHASONE. [Concomitant]
     Active Substance: DEXAMETHASONE
     Dosage: R+FCD REGIMEN, DAY 1-4
     Route: 065
     Dates: start: 20150613
  34. MABTHERA [Suspect]
     Active Substance: RITUXIMAB
     Indication: NON-HODGKIN^S LYMPHOMA
     Dosage: RFC REGIMEN,DAY0
     Route: 065
     Dates: start: 20130417
  35. PREDNISONE. [Concomitant]
     Active Substance: PREDNISONE
     Dosage: R+MPT REGIMEN
     Route: 065
     Dates: start: 20130116
  36. CHLORAMBUCIL [Concomitant]
     Active Substance: CHLORAMBUCIL
     Dosage: R+MPT REGIMEN
     Route: 065
     Dates: start: 20130417
  37. BORTEZOMIB. [Concomitant]
     Active Substance: BORTEZOMIB
     Indication: NON-HODGKIN^S LYMPHOMA
     Dosage: PAD REGIMEN, DAY 1, 4, 8, 11
     Route: 065
     Dates: start: 20130627
  38. BORTEZOMIB. [Concomitant]
     Active Substance: BORTEZOMIB
     Dosage: PAD REGIMEN
     Route: 065
     Dates: start: 20140322
  39. CYCLOPHOSPHAMIDE. [Concomitant]
     Active Substance: CYCLOPHOSPHAMIDE
     Dosage: DAY1-3, R-FCD REGIMEN
     Route: 065
     Dates: start: 20151119

REACTIONS (14)
  - Coma [Recovered/Resolved]
  - Renal cyst [Unknown]
  - Cognitive disorder [Recovered/Resolved]
  - Haemorrhage [Unknown]
  - Off label use [Unknown]
  - Pneumonia [Unknown]
  - Prostatomegaly [Unknown]
  - Drug ineffective [Unknown]
  - Bone marrow failure [Unknown]
  - Splenomegaly [Unknown]
  - Intentional product use issue [Unknown]
  - Waldenstrom^s macroglobulinaemia [Unknown]
  - Hemiplegia [Unknown]
  - Spinal osteoarthritis [Unknown]

NARRATIVE: CASE EVENT DATE: 20130914
